FAERS Safety Report 10255419 (Version 1)
Quarter: 2014Q2

REPORT INFORMATION
  Report Type: Spontaneous
  Country: US (occurrence: US)
  Receive Date: 20140624
  Receipt Date: 20140624
  Transmission Date: 20141212
  Serious: No
  Sender: FDA-Public Use
  Company Number: US-BAYER-2014-094370

PATIENT
  Age: 80 Year
  Sex: Female
  Weight: 68 kg

DRUGS (5)
  1. ALEVE CAPLET [Suspect]
     Dosage: 1 DF, PRN
     Route: 048
     Dates: end: 20140621
  2. BAYER ASPIRIN SUGAR FREE LOW DOSE ENTERIC [Concomitant]
     Dosage: 1 DF, QD
     Route: 048
  3. COREG [Concomitant]
  4. NORVASC [Concomitant]
  5. NEXIUM [Concomitant]

REACTIONS (3)
  - Throat irritation [Recovered/Resolved]
  - Vomiting [Recovered/Resolved]
  - Oropharyngeal discomfort [Not Recovered/Not Resolved]
